FAERS Safety Report 11145959 (Version 1)
Quarter: 2015Q2

REPORT INFORMATION
  Report Type: Report from Study
  Country: FR (occurrence: FR)
  Receive Date: 20150528
  Receipt Date: 20150528
  Transmission Date: 20150821
  Serious: Yes (Hospitalization)
  Sender: FDA-Public Use
  Company Number: FR-GLAXOSMITHKLINE-FR2015GSK072860

PATIENT
  Age: 70 Year
  Sex: Female

DRUGS (7)
  1. TENORMIN [Concomitant]
     Active Substance: ATENOLOL
  2. OMEGA-3-ACID ETHYL ESTERS. [Suspect]
     Active Substance: OMEGA-3-ACID ETHYL ESTERS
     Indication: ISCHAEMIC HEART DISEASE PROPHYLAXIS
     Dosage: UNK
     Dates: start: 20091130
  3. ASPEGIC [Concomitant]
     Active Substance: ASPIRIN DL-LYSINE
  4. TRIATEC [Concomitant]
     Active Substance: RAMIPRIL
  5. CRESTOR [Concomitant]
     Active Substance: ROSUVASTATIN CALCIUM
  6. LEVEMIR [Concomitant]
     Active Substance: INSULIN DETEMIR
  7. PLAVIX [Concomitant]
     Active Substance: CLOPIDOGREL BISULFATE

REACTIONS (1)
  - Sciatica [Unknown]

NARRATIVE: CASE EVENT DATE: 20100216
